FAERS Safety Report 24157482 (Version 1)
Quarter: 2024Q3

REPORT INFORMATION
  Report Type: Spontaneous
  Country: US (occurrence: US)
  Receive Date: 20240731
  Receipt Date: 20240731
  Transmission Date: 20241017
  Serious: No
  Sender: COSETTE PHARMACEUTICALS
  Company Number: US-COSETTE-CP2024US000185

PATIENT
  Age: 44 Year
  Sex: Female
  Weight: 142 kg

DRUGS (1)
  1. VYLEESI [Suspect]
     Active Substance: BREMELANOTIDE ACETATE
     Indication: Product use in unapproved indication
     Route: 058
     Dates: start: 20240611

REACTIONS (5)
  - Skin disorder [Recovered/Resolved]
  - Injection site reaction [Recovered/Resolved]
  - Cough [Recovered/Resolved]
  - Product use in unapproved indication [Unknown]
  - Device failure [Unknown]

NARRATIVE: CASE EVENT DATE: 20240611
